FAERS Safety Report 20993754 (Version 1)
Quarter: 2022Q2

REPORT INFORMATION
  Report Type: Spontaneous
  Country: None (occurrence: A1)
  Receive Date: 20220622
  Receipt Date: 20220622
  Transmission Date: 20220721
  Serious: Yes (Hospitalization)
  Sender: FDA-Public Use
  Company Number: A1-Avion Pharmaceuticals, LLC-2130164

PATIENT
  Age: 59 Year
  Sex: Male

DRUGS (5)
  1. DHIVY [Suspect]
     Active Substance: CARBIDOPA\LEVODOPA
     Indication: Parkinson^s disease
     Route: 048
  2. CARBIDOPA AND LEVODOPA [Suspect]
     Active Substance: CARBIDOPA\LEVODOPA
     Route: 050
  3. ROTIGOTINE [Suspect]
     Active Substance: ROTIGOTINE
     Route: 065
  4. PREDNISOLONE [Suspect]
     Active Substance: PREDNISOLONE
     Route: 048
  5. ISTRADEFYLLINE [Suspect]
     Active Substance: ISTRADEFYLLINE
     Route: 065

REACTIONS (21)
  - Encephalopathy [Unknown]
  - Nephrotic syndrome [Unknown]
  - On and off phenomenon [Recovering/Resolving]
  - Hallucination [Recovering/Resolving]
  - Impulse-control disorder [Recovering/Resolving]
  - Peripheral swelling [Unknown]
  - Generalised tonic-clonic seizure [Recovered/Resolved]
  - Hypertension [Unknown]
  - Oedema [Unknown]
  - Somnolence [Unknown]
  - Akinesia [Unknown]
  - Muscle rigidity [Unknown]
  - Resting tremor [Unknown]
  - Hypoalbuminaemia [Unknown]
  - Proteinuria [Unknown]
  - Urinary casts [Unknown]
  - Thrombosis [Unknown]
  - Pleural effusion [Unknown]
  - Ascites [Unknown]
  - Vasogenic cerebral oedema [Unknown]
  - Erythema [Recovering/Resolving]
